FAERS Safety Report 4665010-8 (Version None)
Quarter: 2005Q2

REPORT INFORMATION
  Report Type: 
  Country: None (occurrence: None)
  Receive Date: 20050518
  Receipt Date: 20050518
  Transmission Date: 20051028
  Serious: Yes (Other)
  Sender: FDA-Public Use
  Company Number: None

PATIENT
  Age: 63 Year
  Sex: Male
  Weight: 130 kg

DRUGS (1)
  1. ROCEPHIN [Suspect]
     Indication: WOUND INFECTION
     Dosage: 1G IV QD
     Route: 042
     Dates: start: 20050511

REACTIONS (2)
  - RASH GENERALISED [None]
  - URTICARIA GENERALISED [None]
